FAERS Safety Report 20559921 (Version 2)
Quarter: 2022Q1

REPORT INFORMATION
  Report Type: Spontaneous
  Country: GR (occurrence: GR)
  Receive Date: 20220307
  Receipt Date: 20220309
  Transmission Date: 20220423
  Serious: Yes (Hospitalization, Other)
  Sender: FDA-Public Use
  Company Number: GR-MYLANLABS-2022M1004171

PATIENT
  Age: 10 Year
  Sex: Male

DRUGS (12)
  1. PIPERACILLIN SODIUM\TAZOBACTAM SODIUM [Suspect]
     Active Substance: PIPERACILLIN SODIUM\TAZOBACTAM SODIUM
     Indication: Abscess neck
     Dosage: UNK
  2. PIPERACILLIN SODIUM\TAZOBACTAM SODIUM [Suspect]
     Active Substance: PIPERACILLIN SODIUM\TAZOBACTAM SODIUM
     Indication: Lymphadenitis
  3. PIPERACILLIN SODIUM\TAZOBACTAM SODIUM [Suspect]
     Active Substance: PIPERACILLIN SODIUM\TAZOBACTAM SODIUM
     Indication: Abscess
  4. AZITHROMYCIN [Suspect]
     Active Substance: AZITHROMYCIN
     Indication: Lymphadenitis
     Dosage: UNK
  5. AZITHROMYCIN [Suspect]
     Active Substance: AZITHROMYCIN
     Indication: Pyrexia
  6. TEICOPLANIN [Suspect]
     Active Substance: TEICOPLANIN
     Indication: Abscess neck
     Dosage: UNK
  7. TEICOPLANIN [Suspect]
     Active Substance: TEICOPLANIN
     Indication: Abscess
  8. TEICOPLANIN [Suspect]
     Active Substance: TEICOPLANIN
     Indication: Lymphadenitis
  9. CLINDAMYCIN [Suspect]
     Active Substance: CLINDAMYCIN
     Indication: Lymphadenitis
     Dosage: UNK
  10. CLINDAMYCIN [Suspect]
     Active Substance: CLINDAMYCIN
     Indication: Pyrexia
  11. CEFUROXIME [Suspect]
     Active Substance: CEFUROXIME
     Indication: Lymphadenitis
     Dosage: UNK
  12. CEFUROXIME [Suspect]
     Active Substance: CEFUROXIME
     Indication: Pyrexia

REACTIONS (11)
  - Swelling face [Recovering/Resolving]
  - Drug reaction with eosinophilia and systemic symptoms [Recovered/Resolved]
  - Pruritus [Recovering/Resolving]
  - Rash [Recovering/Resolving]
  - Albuminuria [Recovering/Resolving]
  - Pyrexia [Recovering/Resolving]
  - Haematuria [Recovering/Resolving]
  - Hepatomegaly [Recovering/Resolving]
  - Rash macular [Recovering/Resolving]
  - Transaminases increased [Recovering/Resolving]
  - Drug ineffective [Recovered/Resolved]
